FAERS Safety Report 10206350 (Version 3)
Quarter: 2014Q3

REPORT INFORMATION
  Report Type: Spontaneous
  Country: US (occurrence: None)
  Receive Date: 20140527
  Receipt Date: 20140728
  Transmission Date: 20150326
  Serious: Yes (Hospitalization, Other)
  Sender: FDA-Public Use
  Company Number: UNT-2014-000469

PATIENT
  Age: 77 Year
  Sex: Male
  Weight: 74.8 kg

DRUGS (4)
  1. REVATIO [Concomitant]
     Active Substance: SILDENAFIL CITRATE
  2. BOSENTAN [Concomitant]
     Active Substance: BOSENTAN\BOSENTAN MONOHYDRATE
  3. TYVASO [Suspect]
     Active Substance: TREPROSTINIL
     Indication: PULMONARY ARTERIAL HYPERTENSION
     Route: 055
     Dates: start: 20101123, end: 20140524
  4. WARFARIN (WARFARIN) [Concomitant]
     Active Substance: WARFARIN

REACTIONS (10)
  - Transient ischaemic attack [None]
  - Pneumonia [None]
  - Pyrexia [None]
  - Constipation [None]
  - Dyspnoea [None]
  - Gastrooesophageal reflux disease [None]
  - Fall [None]
  - Depression [None]
  - Hypercalcaemia [None]
  - Anxiety [None]

NARRATIVE: CASE EVENT DATE: 201404
